FAERS Safety Report 5501238-2 (Version None)
Quarter: 2007Q4

REPORT INFORMATION
  Report Type: 
  Country: None (occurrence: None)
  Receive Date: 20071029
  Receipt Date: 20071020
  Transmission Date: 20080405
  Serious: Yes (Other)
  Sender: FDA-Public Use
  Company Number: US-GENENTECH-250114

PATIENT
  Age: 72 Year
  Sex: Female

DRUGS (5)
  1. RITUXAN [Suspect]
     Indication: CHRONIC LYMPHOCYTIC LEUKAEMIA
     Dosage: 100 MG, UNK
     Route: 042
  2. RITUXAN [Suspect]
     Dosage: 375 MG/M2, UNK
  3. PENTOSTATIN [Suspect]
     Indication: CHRONIC LYMPHOCYTIC LEUKAEMIA
     Dosage: 4 MG/M2, Q3W
     Route: 042
  4. CYCLOPHOSPHAMIDE [Suspect]
     Indication: CHRONIC LYMPHOCYTIC LEUKAEMIA
     Dosage: 600 MG/M2, Q3W
     Route: 042
  5. HYDRATION (UNK INGREDIENTS) [Concomitant]
     Indication: PROPHYLAXIS

REACTIONS (2)
  - HAEMOLYTIC ANAEMIA [None]
  - NEUTROPENIC SEPSIS [None]
